FAERS Safety Report 14957633 (Version 1)
Quarter: 2018Q2

REPORT INFORMATION
  Report Type: Spontaneous
  Country: US (occurrence: US)
  Receive Date: 20180531
  Receipt Date: 20180531
  Transmission Date: 20180711
  Serious: No
  Sender: FDA-Public Use
  Company Number: US-ARBOR PHARMACEUTICALS, LLC-US-2017ARB000834

PATIENT

DRUGS (3)
  1. HORIZANT [Suspect]
     Active Substance: GABAPENTIN ENACARBIL
     Indication: NEURALGIA
     Dosage: UNK
     Dates: start: 2015
  2. HORIZANT [Suspect]
     Active Substance: GABAPENTIN ENACARBIL
     Dosage: 1200 MG, QD
     Dates: start: 201702, end: 20170405
  3. HORIZANT [Suspect]
     Active Substance: GABAPENTIN ENACARBIL
     Dosage: 600 MG, QD
     Dates: start: 20170405

REACTIONS (5)
  - Muscular weakness [Not Recovered/Not Resolved]
  - Feeling of despair [Unknown]
  - Nausea [Unknown]
  - Irritability [Unknown]
  - Fall [Unknown]

NARRATIVE: CASE EVENT DATE: 2017
